FAERS Safety Report 5974106-X (Version None)
Quarter: 2008Q4

REPORT INFORMATION
  Report Type: 
  Country: None (occurrence: None)
  Receive Date: 20081125
  Receipt Date: 20081106
  Transmission Date: 20090506
  Serious: Yes (Hospitalization)
  Sender: FDA-Public Use
  Company Number: DSJ-2008-12320

PATIENT
  Age: 51 Year
  Sex: Male

DRUGS (3)
  1. OLMESARTAN MEDOXOMIL [Suspect]
     Indication: HYPERTENSION
     Dosage: 20 MG (20 MG, 1 IN 1 D) PER ORAL
     Route: 048
     Dates: start: 20080610, end: 20080917
  2. AMARYL [Concomitant]
  3. BASTAMION (VOGLIBOSE) (VOGLIBOSE) [Concomitant]

REACTIONS (3)
  - HYPOTENSION [None]
  - PROTEIN URINE PRESENT [None]
  - RENAL IMPAIRMENT [None]
